FAERS Safety Report 4763522-X (Version None)
Quarter: 2005Q3

REPORT INFORMATION
  Report Type: 
  Country: None (occurrence: None)
  Receive Date: 20050908
  Receipt Date: 20050901
  Transmission Date: 20060218
  Serious: Yes (Hospitalization)
  Sender: FDA-Public Use
  Company Number: 200512962FR

PATIENT
  Age: 53 Year
  Sex: Female

DRUGS (4)
  1. LASILIX [Suspect]
     Route: 048
     Dates: start: 20000615
  2. PRAVASTATIN [Suspect]
     Route: 048
     Dates: start: 20000615
  3. PREVISCAN [Suspect]
     Route: 048
     Dates: start: 20050215
  4. OMEPRAZOLE [Suspect]
     Route: 048
     Dates: start: 20000615

REACTIONS (1)
  - RECTAL HAEMORRHAGE [None]
